FAERS Safety Report 7380436-X (Version None)
Quarter: 2011Q1

REPORT INFORMATION
  Report Type: 
  Country: None (occurrence: None)
  Receive Date: 20110329
  Receipt Date: 20110322
  Transmission Date: 20110831
  Serious: Yes (Disabling)
  Sender: FDA-Public Use
  Company Number: US-ROCHE-767435

PATIENT
  Age: 63 Year
  Sex: Male
  Weight: 74.8 kg

DRUGS (4)
  1. PRISTIQ [Suspect]
     Indication: MAJOR DEPRESSION
     Route: 048
     Dates: start: 20101001, end: 20110101
  2. PRISTIQ [Suspect]
     Dosage: DOSE INCREASED. FORM: PROLONGED RELEASE TABLET
     Route: 048
     Dates: start: 20110101
  3. KLONOPIN [Suspect]
     Indication: NERVOUSNESS
     Route: 048
  4. XANAX [Suspect]
     Route: 048
     Dates: end: 20110201

REACTIONS (8)
  - THINKING ABNORMAL [None]
  - BLOOD PRESSURE INCREASED [None]
  - ANGER [None]
  - ARTHROPATHY [None]
  - MIGRAINE [None]
  - DEPRESSION [None]
  - ARTHRALGIA [None]
  - PANIC ATTACK [None]
